FAERS Safety Report 17801331 (Version 1)
Quarter: 2020Q2

REPORT INFORMATION
  Report Type: Report from Study
  Country: US (occurrence: US)
  Receive Date: 20200519
  Receipt Date: 20200519
  Transmission Date: 20200714
  Serious: Yes (Hospitalization, Other)
  Sender: FDA-Public Use
  Company Number: US-BRISTOL-MYERS SQUIBB COMPANY-BMS-2020-038081

PATIENT
  Age: 37 Year
  Sex: Female
  Weight: 52 kg

DRUGS (3)
  1. NIVOLUMAB [Suspect]
     Active Substance: NIVOLUMAB
     Indication: B PRECURSOR TYPE ACUTE LEUKAEMIA
     Dosage: 80 MILLIGRAM
     Route: 042
     Dates: start: 20191029, end: 20191029
  2. BLINATUMOMAB [Suspect]
     Active Substance: BLINATUMOMAB
     Indication: B PRECURSOR TYPE ACUTE LEUKAEMIA
     Dosage: 651 MICROGRAM
     Route: 042
     Dates: start: 20191017, end: 20191111
  3. IPILIMUMAB [Suspect]
     Active Substance: IPILIMUMAB
     Indication: B PRECURSOR TYPE ACUTE LEUKAEMIA
     Dosage: 57 MILLIGRAM
     Route: 042
     Dates: start: 20191029, end: 20191029

REACTIONS (4)
  - Febrile neutropenia [Unknown]
  - Pneumonitis [Unknown]
  - Non-cardiac chest pain [Recovered/Resolved]
  - Pleuritic pain [Unknown]

NARRATIVE: CASE EVENT DATE: 20191112
